FAERS Safety Report 7617402-2 (Version None)
Quarter: 2011Q3

REPORT INFORMATION
  Report Type: 
  Country: None (occurrence: None)
  Receive Date: 20110718
  Receipt Date: 20110712
  Transmission Date: 20111222
  Serious: Yes (Death)
  Sender: FDA-Public Use
  Company Number: US-PFIZER INC-2011141105

PATIENT
  Sex: Male

DRUGS (4)
  1. PERCOCET [Concomitant]
     Dosage: 1 (5-325 MG TABLET) EVERY 6 HOURS AS NEEDED
     Route: 048
     Dates: start: 20110429
  2. CHANTIX [Suspect]
     Indication: SMOKING CESSATION THERAPY
     Dosage: 1 MG, 2X/DAY
     Route: 048
     Dates: start: 20110501, end: 20110601
  3. CELEXA [Concomitant]
     Dosage: 40 MG, 1X/DAY
     Route: 048
     Dates: start: 20110113
  4. LISINOPRIL [Concomitant]
     Dosage: 40 MG, 1X/DAY
     Route: 048
     Dates: start: 20110520

REACTIONS (1)
  - COMPLETED SUICIDE [None]
